FAERS Safety Report 6694928-X (Version None)
Quarter: 2010Q2

REPORT INFORMATION
  Report Type: 
  Country: None (occurrence: None)
  Receive Date: 20100423
  Receipt Date: 20100411
  Transmission Date: 20101027
  Serious: Yes (Hospitalization, Other)
  Sender: FDA-Public Use
  Company Number: AT-ELI_LILLY_AND_COMPANY-AT200909007065

PATIENT
  Age: 46 Year
  Sex: Female

DRUGS (5)
  1. ZYPREXA [Suspect]
     Dosage: UNK, UNK
     Route: 030
     Dates: start: 20000101
  2. ZYPREXA [Suspect]
     Dosage: 7.5 MG, UNK
  3. HOMEOPATIC PREPARATION [Concomitant]
  4. PIPORTIL DEPOT [Concomitant]
  5. SEROQUEL [Concomitant]

REACTIONS (49)
  - ADVERSE DRUG REACTION [None]
  - ANAEMIA [None]
  - BLOOD IRON DECREASED [None]
  - BLOOD PROLACTIN INCREASED [None]
  - BONE DISORDER [None]
  - BONE MARROW DISORDER [None]
  - CYANOSIS [None]
  - DEHYDRATION [None]
  - DELUSION [None]
  - DYSPNOEA EXERTIONAL [None]
  - ENDOCRINE DISORDER [None]
  - ENDOMETRIAL HYPERPLASIA [None]
  - FATIGUE [None]
  - FEELING ABNORMAL [None]
  - FLUID RETENTION [None]
  - GALACTORRHOEA [None]
  - GRIP STRENGTH DECREASED [None]
  - HEART RATE IRREGULAR [None]
  - HORMONE LEVEL ABNORMAL [None]
  - HOSPITALISATION [None]
  - HYPOREFLEXIA [None]
  - HYPOTENSION [None]
  - LACRIMAL DISORDER [None]
  - LIPIDS ABNORMAL [None]
  - MALABSORPTION [None]
  - MENORRHAGIA [None]
  - METABOLIC DISORDER [None]
  - MOBILITY DECREASED [None]
  - MUSCLE SPASMS [None]
  - MUSCULOSKELETAL STIFFNESS [None]
  - NEUROTRANSMITTER LEVEL ALTERED [None]
  - OBESITY [None]
  - OEDEMA PERIPHERAL [None]
  - ORGAN FAILURE [None]
  - PANCREATIC DISORDER [None]
  - PARAESTHESIA [None]
  - PARANOIA [None]
  - PERIPHERAL COLDNESS [None]
  - POLYDIPSIA [None]
  - POOR PERIPHERAL CIRCULATION [None]
  - POOR QUALITY SLEEP [None]
  - RED BLOOD CELL COUNT DECREASED [None]
  - RENAL IMPAIRMENT [None]
  - SENSORY LOSS [None]
  - SOMATOFORM DISORDER PREGNANCY [None]
  - THIRST [None]
  - UTERINE HAEMORRHAGE [None]
  - VISUAL IMPAIRMENT [None]
  - WEIGHT INCREASED [None]
